FAERS Safety Report 25828881 (Version 2)
Quarter: 2025Q4

REPORT INFORMATION
  Report Type: Spontaneous
  Country: US (occurrence: US)
  Receive Date: 20250922
  Receipt Date: 20251017
  Transmission Date: 20260117
  Serious: No
  Sender: TAKEDA
  Company Number: US-TAKEDA-2025TUS081858

PATIENT
  Age: 62 Year
  Sex: Female

DRUGS (3)
  1. TAKHZYRO [Suspect]
     Active Substance: LANADELUMAB-FLYO
     Indication: Immune system disorder
     Dosage: 300 MILLIGRAM, Q2WEEKS
  2. TAKHZYRO [Suspect]
     Active Substance: LANADELUMAB-FLYO
  3. TAKHZYRO [Suspect]
     Active Substance: LANADELUMAB-FLYO

REACTIONS (2)
  - Therapeutic response shortened [Unknown]
  - Hereditary angioedema [Unknown]
